FAERS Safety Report 4949563-8 (Version None)
Quarter: 2006Q1

REPORT INFORMATION
  Report Type: 
  Country: None (occurrence: None)
  Receive Date: 20060316
  Receipt Date: 20060228
  Transmission Date: 20060701
  Serious: Yes (Other)
  Sender: FDA-Public Use
  Company Number: DSA_27844_2006

PATIENT
  Sex: Female

DRUGS (1)
  1. VASOTEC [Suspect]
     Indication: HYPERTENSION
     Dosage: DF

REACTIONS (20)
  - ALOPECIA [None]
  - ANGER [None]
  - ARTHRALGIA [None]
  - BALANCE DISORDER [None]
  - DISTURBANCE IN ATTENTION [None]
  - DIZZINESS [None]
  - DYSGEUSIA [None]
  - DYSPEPSIA [None]
  - DYSPNOEA [None]
  - HEART RATE INCREASED [None]
  - LIBIDO DECREASED [None]
  - MEMORY IMPAIRMENT [None]
  - NAIL DISORDER [None]
  - NECK PAIN [None]
  - NERVOUSNESS [None]
  - RESTLESSNESS [None]
  - SHOULDER PAIN [None]
  - SLEEP DISORDER [None]
  - TINNITUS [None]
  - VISUAL ACUITY REDUCED [None]
